FAERS Safety Report 4819055-5 (Version None)
Quarter: 2005Q4

REPORT INFORMATION
  Report Type: 
  Country: None (occurrence: None)
  Receive Date: 20051101
  Receipt Date: 20051101
  Transmission Date: 20060501
  Serious: Yes (Other)
  Sender: FDA-Public Use
  Company Number: None

PATIENT
  Sex: Female

DRUGS (1)
  1. NABUMETONE [Suspect]
     Indication: INFLAMMATION
     Dosage: ONE BID

REACTIONS (2)
  - DIPLOPIA [None]
  - PAIN [None]
